FAERS Safety Report 6574816-X (Version None)
Quarter: 2010Q1

REPORT INFORMATION
  Report Type: 
  Country: None (occurrence: None)
  Receive Date: 20100209
  Receipt Date: 20100204
  Transmission Date: 20100710
  Serious: Yes (Death, Hospitalization, Other)
  Sender: FDA-Public Use
  Company Number: PHEH2008US01756

PATIENT
  Sex: Female

DRUGS (2)
  1. ELIDEL [Suspect]
     Indication: ECZEMA
     Dosage: UNK, UNK
     Route: 061
     Dates: start: 20021206, end: 20051212
  2. LOTRIMIN [Concomitant]
     Route: 061

REACTIONS (30)
  - ACUTE LEUKAEMIA [None]
  - ACUTE MYELOID LEUKAEMIA [None]
  - AGRANULOCYTOSIS [None]
  - ALOPECIA [None]
  - ANAL FISSURE [None]
  - ASPIRATION BONE MARROW [None]
  - ATELECTASIS [None]
  - BLOOD PRESSURE DECREASED [None]
  - CENTRAL VENOUS CATHETERISATION [None]
  - CHRONIC SINUSITIS [None]
  - CONTUSION [None]
  - DIALYSIS [None]
  - HYPERGLYCAEMIA [None]
  - MULTI-ORGAN FAILURE [None]
  - NEUTROPENIA [None]
  - PALLOR [None]
  - PLEURAL EFFUSION [None]
  - PNEUMONIA [None]
  - PULMONARY HAEMORRHAGE [None]
  - PULMONARY OEDEMA [None]
  - PYREXIA [None]
  - RENAL FAILURE ACUTE [None]
  - RESPIRATORY FAILURE [None]
  - SEPTIC SHOCK [None]
  - STREPTOCOCCAL SEPSIS [None]
  - SUPRAVENTRICULAR EXTRASYSTOLES [None]
  - SWELLING [None]
  - TINEA PEDIS [None]
  - VENTRICULAR EXTRASYSTOLES [None]
  - WEIGHT DECREASED [None]
